FAERS Safety Report 24200528 (Version 1)
Quarter: 2024Q3

REPORT INFORMATION
  Report Type: Spontaneous
  Country: US (occurrence: US)
  Receive Date: 20240812
  Receipt Date: 20240812
  Transmission Date: 20241017
  Serious: No
  Sender: GLENMARK
  Company Number: US-GLENMARK PHARMACEUTICALS-2024GMK090244

PATIENT

DRUGS (3)
  1. TELMISARTAN [Suspect]
     Active Substance: TELMISARTAN
     Indication: Blood pressure abnormal
     Dosage: 1 DOSAGE FORM, OD, (AT NIGHT)
     Route: 065
  2. NEBIVOLOL [Concomitant]
     Active Substance: NEBIVOLOL
     Indication: Product used for unknown indication
     Dosage: UNK, AM, (7.30AM IN THE MORNING)
     Route: 065
  3. AMLODIPINE [Concomitant]
     Active Substance: AMLODIPINE BESYLATE
     Indication: Product used for unknown indication
     Dosage: UNK, QD, (AT 12.30PM)
     Route: 065

REACTIONS (4)
  - Dysgeusia [Unknown]
  - Somnolence [Unknown]
  - Product taste abnormal [Unknown]
  - Product odour abnormal [Unknown]
